FAERS Safety Report 6126211-5 (Version None)
Quarter: 2009Q1

REPORT INFORMATION
  Report Type: 
  Country: None (occurrence: None)
  Receive Date: 20090320
  Receipt Date: 20090317
  Transmission Date: 20090719
  Serious: Yes (Hospitalization)
  Sender: FDA-Public Use
  Company Number: B0565414A

PATIENT
  Age: 17 Year
  Sex: Female

DRUGS (3)
  1. RELENZA [Suspect]
     Indication: DRUG USE FOR UNKNOWN INDICATION
     Dosage: 10MG TWICE PER DAY
     Route: 055
     Dates: start: 20090301, end: 20090302
  2. CLARITH [Concomitant]
     Route: 048
     Dates: start: 20090301, end: 20090302
  3. CALCIUM SILICATE [Concomitant]
     Route: 048
     Dates: start: 20090301, end: 20090302

REACTIONS (2)
  - DRUG ERUPTION [None]
  - HEPATIC FUNCTION ABNORMAL [None]
